FAERS Safety Report 12159471 (Version 2)
Quarter: 2016Q1

REPORT INFORMATION
  Report Type: Spontaneous
  Country: TW (occurrence: TW)
  Receive Date: 20160308
  Receipt Date: 20160314
  Transmission Date: 20160526
  Serious: Yes (Life-Threatening)
  Sender: FDA-Public Use
  Company Number: TW-GE HEALTHCARE MEDICAL DIAGNOSTICS-OMPQ-PR-1603S-0244

PATIENT
  Age: 66 Year
  Sex: Male

DRUGS (2)
  1. OMNIPAQUE [Suspect]
     Active Substance: IOHEXOL
     Indication: DIAGNOSTIC PROCEDURE
  2. OMNIPAQUE [Suspect]
     Active Substance: IOHEXOL
     Indication: LUNG NEOPLASM MALIGNANT
     Route: 042
     Dates: start: 20160128, end: 20160128

REACTIONS (3)
  - Pyrexia [Recovering/Resolving]
  - Syncope [Recovered/Resolved with Sequelae]
  - Hypersensitivity [Recovering/Resolving]

NARRATIVE: CASE EVENT DATE: 20160128
